FAERS Safety Report 10455223 (Version 5)
Quarter: 2017Q4

REPORT INFORMATION
  Report Type: Spontaneous
  Country: CA (occurrence: CA)
  Receive Date: 20140916
  Receipt Date: 20171103
  Transmission Date: 20180320
  Serious: Yes (Hospitalization, Disabling)
  Sender: FDA-Public Use
  Company Number: CA-ROCHE-1462257

PATIENT
  Age: 58 Year
  Sex: Female
  Weight: 65 kg

DRUGS (7)
  1. CELLCEPT [Suspect]
     Active Substance: MYCOPHENOLATE MOFETIL\MYCOPHENOLATE MOFETIL HYDROCHLORIDE
     Indication: PRODUCT USED FOR UNKNOWN INDICATION
     Route: 065
     Dates: start: 201202, end: 201308
  2. BENLYSTA [Suspect]
     Active Substance: BELIMUMAB
     Route: 042
     Dates: start: 20130613
  3. BENLYSTA [Suspect]
     Active Substance: BELIMUMAB
     Route: 042
     Dates: start: 201302, end: 201307
  4. PREDNISONE. [Concomitant]
     Active Substance: PREDNISONE
     Route: 065
  5. CELLCEPT [Suspect]
     Active Substance: MYCOPHENOLATE MOFETIL\MYCOPHENOLATE MOFETIL HYDROCHLORIDE
     Route: 065
  6. BENLYSTA [Suspect]
     Active Substance: BELIMUMAB
     Indication: SYSTEMIC LUPUS ERYTHEMATOSUS
     Dosage: 80MG/ML
     Route: 042
     Dates: start: 20130221, end: 20130808
  7. PLAQUENIL [Concomitant]
     Active Substance: HYDROXYCHLOROQUINE SULFATE
     Route: 065

REACTIONS (12)
  - Cognitive disorder [Unknown]
  - Neurological decompensation [Recovered/Resolved with Sequelae]
  - Aphasia [Recovered/Resolved with Sequelae]
  - JC virus infection [Unknown]
  - Leukopenia [Unknown]
  - Lymphopenia [Unknown]
  - Asthenia [Unknown]
  - Apathy [Recovered/Resolved with Sequelae]
  - Infection [Unknown]
  - White matter lesion [Unknown]
  - Progressive multifocal leukoencephalopathy [Unknown]
  - Executive dysfunction [Recovered/Resolved with Sequelae]

NARRATIVE: CASE EVENT DATE: 201305
